FAERS Safety Report 23741513 (Version 1)
Quarter: 2024Q2

REPORT INFORMATION
  Report Type: Spontaneous
  Country: NL (occurrence: NL)
  Receive Date: 20240415
  Receipt Date: 20240415
  Transmission Date: 20240716
  Serious: Yes (Other)
  Sender: FDA-Public Use
  Company Number: None

PATIENT
  Age: 40 Year
  Sex: Male
  Weight: 98 kg

DRUGS (1)
  1. TRAMADOL [Suspect]
     Active Substance: TRAMADOL\TRAMADOL HYDROCHLORIDE
     Indication: Pain
     Dosage: 50 MILLIGRAM, 1 PIECE
     Route: 065
     Dates: start: 20240116, end: 20240117

REACTIONS (3)
  - Erectile dysfunction [Not Recovered/Not Resolved]
  - Genital anaesthesia [Recovering/Resolving]
  - Emotional poverty [Not Recovered/Not Resolved]
